FAERS Safety Report 4893741-3 (Version None)
Quarter: 2006Q1

REPORT INFORMATION
  Report Type: 
  Country: None (occurrence: None)
  Receive Date: 20060127
  Receipt Date: 20060116
  Transmission Date: 20060701
  Serious: Yes (Other)
  Sender: FDA-Public Use
  Company Number: 001#1#2006-00036

PATIENT
  Age: 5 Year
  Sex: Male

DRUGS (1)
  1. AMOCLAV [Suspect]
     Indication: SINUSITIS
     Route: 048
     Dates: start: 20051201, end: 20051201

REACTIONS (3)
  - AGGRESSION [None]
  - INSOMNIA [None]
  - PSYCHOMOTOR HYPERACTIVITY [None]
